FAERS Safety Report 4588049-X (Version None)
Quarter: 2005Q1

REPORT INFORMATION
  Report Type: 
  Country: None (occurrence: None)
  Receive Date: 20050216
  Receipt Date: 20050127
  Transmission Date: 20050727
  Serious: Yes (Hospitalization)
  Sender: FDA-Public Use
  Company Number: EWC050242500

PATIENT
  Age: 34 Year
  Sex: Female
  Weight: 90 kg

DRUGS (5)
  1. OLANZAPINE [Suspect]
     Indication: BIPOLAR DISORDER
     Dosage: 5 MG DAY
     Dates: start: 20040101
  2. EUTIROX (LEVOTHYROXINE) [Concomitant]
  3. EFFEXOR [Concomitant]
  4. LORAZEPAM [Concomitant]
  5. LITHIUM [Concomitant]

REACTIONS (10)
  - ANAEMIA [None]
  - CAESAREAN SECTION [None]
  - DRUG EXPOSURE DURING PREGNANCY [None]
  - HYPOTHYROIDISM [None]
  - POSTPARTUM DISORDER [None]
  - PRE-ECLAMPSIA [None]
  - PREGNANCY [None]
  - SERUM FERRITIN DECREASED [None]
  - THROMBOCYTHAEMIA [None]
  - WHITE BLOOD CELL COUNT DECREASED [None]
